FAERS Safety Report 6112025-9 (Version None)
Quarter: 2009Q1

REPORT INFORMATION
  Report Type: 
  Country: None (occurrence: None)
  Receive Date: 20090310
  Receipt Date: 20090304
  Transmission Date: 20090719
  Serious: Yes (Hospitalization)
  Sender: FDA-Public Use
  Company Number: US025516

PATIENT
  Age: 62 Year
  Sex: Male
  Weight: 72.5755 kg

DRUGS (3)
  1. BENDAMUSTINE [Suspect]
     Indication: NON-HODGKIN'S LYMPHOMA
     Dosage: 90 MG/M2 D1 AND D2 Q35 DAYS INTRAVENOUS
     Route: 042
     Dates: start: 20090224
  2. VELCADE [Concomitant]
  3. RITUXIMAB [Concomitant]

REACTIONS (12)
  - ALPHA HAEMOLYTIC STREPTOCOCCAL INFECTION [None]
  - ANAEMIA [None]
  - ATELECTASIS [None]
  - DEHYDRATION [None]
  - GENERALISED OEDEMA [None]
  - HYDRONEPHROSIS [None]
  - LYMPHADENOPATHY [None]
  - LYMPHOMA [None]
  - MYOCARDIAL ISCHAEMIA [None]
  - PLEURAL EFFUSION [None]
  - RESPIRATORY RATE INCREASED [None]
  - SINUS TACHYCARDIA [None]
